FAERS Safety Report 8874136 (Version 1)
Quarter: 2012Q4

REPORT INFORMATION
  Report Type: 
  Country: FR (occurrence: FR)
  Receive Date: 20121031
  Receipt Date: 20121031
  Transmission Date: 20130627
  Serious: Yes (Hospitalization)
  Sender: FDA-Public Use
  Company Number: FR-AMGEN-FRASP2012068335

PATIENT
  Age: 89 Year
  Sex: Male

DRUGS (7)
  1. NPLATE [Suspect]
     Indication: MYELODYSPLASTIC SYNDROME
     Dosage: 250 mug, qwk
     Route: 058
     Dates: start: 2010
  2. EPREX [Suspect]
     Indication: MYELODYSPLASTIC SYNDROME
     Dosage: 30000 unit, qwk
     Route: 058
     Dates: start: 2010
  3. FUROSEMIDE [Concomitant]
     Dosage: 40 mg, UNK
  4. SECTRAL [Concomitant]
     Dosage: 200 mg, UNK
  5. NITRIDERM TTS [Concomitant]
     Dosage: 5 mg, UNK
  6. PLAVIX [Concomitant]
     Dosage: 75 mg, UNK
  7. CRESTOR [Concomitant]
     Dosage: 5 mg, UNK

REACTIONS (2)
  - Deep vein thrombosis [Recovering/Resolving]
  - Pulmonary embolism [Recovering/Resolving]
